FAERS Safety Report 13158163 (Version 4)
Quarter: 2017Q1

REPORT INFORMATION
  Report Type: Spontaneous
  Country: US (occurrence: US)
  Receive Date: 20170127
  Receipt Date: 20170331
  Transmission Date: 20170428
  Serious: Yes (Other)
  Sender: FDA-Public Use
  Company Number: US-009507513-1701USA008607

PATIENT
  Age: 52 Year
  Sex: Female
  Weight: 81.65 kg

DRUGS (3)
  1. EFFEXOR [Suspect]
     Active Substance: VENLAFAXINE HYDROCHLORIDE
     Indication: DEPRESSION
     Dosage: 75 MG, BID
     Route: 048
     Dates: start: 20161223
  2. IBUPROFEN. [Concomitant]
     Active Substance: IBUPROFEN
     Indication: BACK PAIN
     Dosage: 600 MG, QD
     Route: 048
  3. PRINIVIL [Suspect]
     Active Substance: LISINOPRIL
     Indication: BLOOD PRESSURE MEASUREMENT
     Dosage: 40 MG, BID
     Route: 048

REACTIONS (17)
  - Asthenopia [Recovered/Resolved]
  - Hypotension [Recovered/Resolved]
  - Peripheral coldness [Not Recovered/Not Resolved]
  - Pruritus [Recovered/Resolved]
  - Hypotension [Recovered/Resolved]
  - Incorrect dose administered [Unknown]
  - Incorrect dose administered [Not Recovered/Not Resolved]
  - Cardiac fibrillation [Recovered/Resolved]
  - Medication error [Unknown]
  - Feeling abnormal [Not Recovered/Not Resolved]
  - Wheezing [Recovered/Resolved]
  - Dry mouth [Recovering/Resolving]
  - Fatigue [Recovered/Resolved]
  - Energy increased [Not Recovered/Not Resolved]
  - Depression [Recovered/Resolved]
  - Poor quality sleep [Not Recovered/Not Resolved]
  - Somnolence [Recovered/Resolved]

NARRATIVE: CASE EVENT DATE: 20161223
